FAERS Safety Report 11847606 (Version 1)
Quarter: 2015Q4

REPORT INFORMATION
  Report Type: Spontaneous
  Country: US (occurrence: US)
  Receive Date: 20151217
  Receipt Date: 20151217
  Transmission Date: 20160305
  Serious: No
  Sender: FDA-Public Use
  Company Number: US-PURDUE-USA-2015-0123663

PATIENT
  Sex: Female

DRUGS (2)
  1. HYDROMORPHONE HCL (SIMILAR TO 19-892) [Suspect]
     Active Substance: HYDROMORPHONE HYDROCHLORIDE
     Indication: HEADACHE
     Route: 048
  2. HYDROMORPHONE TABLET (RHODES) [Suspect]
     Active Substance: HYDROMORPHONE
     Indication: HEADACHE
     Dosage: 2 MG, UNK
     Route: 048

REACTIONS (6)
  - Fatigue [Unknown]
  - Drug effect decreased [Unknown]
  - Drug ineffective [Unknown]
  - Unevaluable event [Unknown]
  - Headache [Unknown]
  - Insomnia [Unknown]
